FAERS Safety Report 17960105 (Version 2)
Quarter: 2020Q2

REPORT INFORMATION
  Report Type: Spontaneous
  Country: AR (occurrence: AR)
  Receive Date: 20200630
  Receipt Date: 20200630
  Transmission Date: 20200714
  Serious: Yes (Hospitalization)
  Sender: FDA-Public Use
  Company Number: AR-NVP-000002

PATIENT
  Age: 17 Year

DRUGS (1)
  1. DAPSONE. [Suspect]
     Active Substance: DAPSONE
     Indication: PRODUCT USED FOR UNKNOWN INDICATION
     Dosage: 5 G
     Route: 065

REACTIONS (5)
  - Methaemoglobinaemia [Recovered/Resolved]
  - Toxicity to various agents [Recovered/Resolved]
  - Hypoxia [Recovered/Resolved]
  - Cyanosis [Recovered/Resolved]
  - Mental status changes [Recovered/Resolved]
